FAERS Safety Report 5628174-5 (Version None)
Quarter: 2008Q1

REPORT INFORMATION
  Report Type: 
  Country: None (occurrence: None)
  Receive Date: 20080215
  Receipt Date: 20080205
  Transmission Date: 20080703
  Serious: Yes (Other)
  Sender: FDA-Public Use
  Company Number: BR-GENENTECH-255905

PATIENT
  Sex: Female

DRUGS (2)
  1. MABTHERA [Suspect]
     Indication: NON-HODGKIN'S LYMPHOMA
     Dosage: UNK, 1/WEEK
     Route: 042
     Dates: start: 20040615
  2. MABTHERA [Suspect]
     Dosage: UNK, Q2M
     Route: 042

REACTIONS (1)
  - DEPRESSION [None]
